FAERS Safety Report 25208262 (Version 3)
Quarter: 2025Q2

REPORT INFORMATION
  Report Type: Spontaneous
  Country: CA (occurrence: CA)
  Receive Date: 20250417
  Receipt Date: 20250618
  Transmission Date: 20250717
  Serious: Yes (Death, Life-Threatening, Hospitalization, Other)
  Sender: PFIZER
  Company Number: CA-PFIZER INC-202500076180

PATIENT
  Age: 61 Year
  Sex: Male

DRUGS (3)
  1. ABRILADA [Suspect]
     Active Substance: ADALIMUMAB-AFZB
     Indication: Crohn^s disease
     Route: 058
     Dates: start: 20231220
  2. ABRILADA [Suspect]
     Active Substance: ADALIMUMAB-AFZB
     Route: 058
     Dates: start: 20250314
  3. METHOTREXATE [Concomitant]
     Active Substance: METHOTREXATE

REACTIONS (4)
  - Haemoptysis [Fatal]
  - Asthenia [Fatal]
  - Hepatic cirrhosis [Fatal]
  - Haemorrhage [Fatal]

NARRATIVE: CASE EVENT DATE: 20250301
